FAERS Safety Report 21345112 (Version 1)
Quarter: 2022Q3

REPORT INFORMATION
  Report Type: Spontaneous
  Country: IN (occurrence: IN)
  Receive Date: 20220916
  Receipt Date: 20220916
  Transmission Date: 20221027
  Serious: Yes (Other)
  Sender: FDA-Public Use
  Company Number: IN-MLMSERVICE-20220831-3768105-1

PATIENT
  Age: 87 Year
  Sex: Female

DRUGS (2)
  1. HEPARIN SODIUM [Suspect]
     Active Substance: HEPARIN SODIUM
     Indication: Dialysis
     Dosage: 2500 IU BOLUS FOLLOWED BY 500 IU / HR; MGF DATE: 11/2021
     Route: 040
  2. INSULIN NOS [Concomitant]
     Active Substance: INSULIN NOS
     Indication: Diabetes mellitus
     Route: 065

REACTIONS (5)
  - Chest pain [Unknown]
  - Pain in extremity [Unknown]
  - Skin discolouration [Unknown]
  - Gangrene [Unknown]
  - Heparin-induced thrombocytopenia [Unknown]
